FAERS Safety Report 6130226-0 (Version None)
Quarter: 2009Q1

REPORT INFORMATION
  Report Type: 
  Country: None (occurrence: None)
  Receive Date: 20090324
  Receipt Date: 20090316
  Transmission Date: 20090719
  Serious: Yes (Hospitalization)
  Sender: FDA-Public Use
  Company Number: ZA-ABBOTT-09P-143-0562660-00

PATIENT
  Age: 25 Year
  Sex: Male

DRUGS (1)
  1. EPILIM [Suspect]
     Indication: OVERDOSE
     Route: 048

REACTIONS (5)
  - CONFUSIONAL STATE [None]
  - GAIT DISTURBANCE [None]
  - NECK DEFORMITY [None]
  - OVERDOSE [None]
  - PARAESTHESIA ORAL [None]
